FAERS Safety Report 7258215-3 (Version None)
Quarter: 2011Q1

REPORT INFORMATION
  Report Type: 
  Country: None (occurrence: None)
  Receive Date: 20110129
  Receipt Date: 20100706
  Transmission Date: 20110831
  Serious: No
  Sender: FDA-Public Use
  Company Number: US-ABBOTT-10P-163-0655897-00

PATIENT
  Sex: Female
  Weight: 79.45 kg

DRUGS (6)
  1. BUSPIRONE [Concomitant]
     Indication: ANXIETY
  2. LORITADINE [Concomitant]
     Indication: HYPERSENSITIVITY
  3. TRAZODONE HCL [Concomitant]
     Indication: INSOMNIA
  4. RANITIDINE [Concomitant]
     Indication: GASTROOESOPHAGEAL REFLUX DISEASE
  5. HUMIRA [Suspect]
     Indication: PSORIASIS
     Dates: start: 20100111
  6. HUMIRA [Suspect]

REACTIONS (1)
  - PSORIASIS [None]
